FAERS Safety Report 4494597-3 (Version None)
Quarter: 2004Q4

REPORT INFORMATION
  Report Type: 
  Country: None (occurrence: None)
  Receive Date: 20041105
  Receipt Date: 20041029
  Transmission Date: 20050328
  Serious: Yes (Life-Threatening, Disabling)
  Sender: FDA-Public Use
  Company Number: US-MERCK-0411USA00014

PATIENT
  Age: 62 Year
  Sex: Male

DRUGS (5)
  1. VIOXX [Suspect]
     Indication: MONARTHRITIS
     Route: 048
     Dates: start: 20011101, end: 20040930
  2. LIPITOR [Concomitant]
     Route: 065
  3. DRAZIFON [Concomitant]
     Route: 065
  4. TRIAMTERENE [Concomitant]
     Route: 065
  5. ACTONEL [Concomitant]
     Route: 065

REACTIONS (3)
  - DYSPNOEA [None]
  - HEART RATE IRREGULAR [None]
  - PAIN IN EXTREMITY [None]
